FAERS Safety Report 4770862-7 (Version None)
Quarter: 2005Q3

REPORT INFORMATION
  Report Type: 
  Country: None (occurrence: None)
  Receive Date: 20050914
  Receipt Date: 20050901
  Transmission Date: 20060218
  Serious: Yes (Death, Hospitalization, Other)
  Sender: FDA-Public Use
  Company Number: 2005025147

PATIENT
  Age: 50 Year
  Sex: Female

DRUGS (17)
  1. GABAPENTIN [Suspect]
     Indication: NEUROPATHIC PAIN
     Dosage: 1200 MG (1 D), ORAL
     Route: 048
     Dates: start: 20040101, end: 20050101
  2. IRINOTECAN HCL [Suspect]
     Indication: COLON CANCER
     Dosage: (CYCLIC),
     Dates: start: 20050113, end: 20050101
  3. FLUOROURACIL [Suspect]
     Indication: COLON CANCER
     Dosage: (CYCLIC),
     Dates: start: 20040401, end: 20050101
  4. LEUCOVORIN CALCIUM [Suspect]
     Indication: COLON CANCER
     Dosage: (CYCLIC),
     Dates: start: 20040401, end: 20040923
  5. OXALIPLATIN (OXALIPLATIN) [Suspect]
     Indication: COLON CANCER
     Dosage: (CYCLIC),
     Dates: start: 20040401, end: 20040923
  6. XELODA [Suspect]
     Indication: COLON CANCER
     Dates: start: 20040101
  7. TRYPTIZOL (AMITRIPTYLINE HYDROCHLORIDE) [Concomitant]
  8. DURAGESIC-100 [Concomitant]
  9. CLONAZEPAM [Concomitant]
  10. MORPHINE SULFATE [Concomitant]
  11. IBUPROFEN [Concomitant]
  12. PANTECTA (PANTOPRAZOLE SODIUM) [Concomitant]
  13. DEXAMETHASONE [Concomitant]
  14. PRIMPERAN TAB [Concomitant]
  15. TRANKIMAZIN (ALPRAZOLAM) [Concomitant]
  16. VALIUM [Concomitant]
  17. ZOFRAN [Concomitant]

REACTIONS (32)
  - ACHOLIA [None]
  - ADNEXA UTERI CYST [None]
  - ANTI-HBC ANTIBODY POSITIVE [None]
  - BACK PAIN [None]
  - BILIARY TRACT DISORDER [None]
  - CHOLESTASIS [None]
  - COMPUTERISED TOMOGRAM ABNORMAL [None]
  - DIARRHOEA [None]
  - DIPLOPIA [None]
  - DRUG INTOLERANCE [None]
  - DRUG TOXICITY [None]
  - ENCEPHALOPATHY [None]
  - GAIT DISTURBANCE [None]
  - HAEMANGIOMA [None]
  - HEADACHE [None]
  - HEPATITIS TOXIC [None]
  - INSOMNIA [None]
  - INTERVERTEBRAL DISC DISORDER [None]
  - LYMPHADENOPATHY [None]
  - MALIGNANT NEOPLASM PROGRESSION [None]
  - METASTASES TO ABDOMINAL CAVITY [None]
  - METASTASES TO CENTRAL NERVOUS SYSTEM [None]
  - MUCOSAL INFLAMMATION [None]
  - NEUROPATHY [None]
  - OPHTHALMOPLEGIA [None]
  - PNEUMONIA [None]
  - POST PROCEDURAL DIARRHOEA [None]
  - RENAL IMPAIRMENT [None]
  - SOMNOLENCE [None]
  - SPINAL CORD COMPRESSION [None]
  - THERAPY NON-RESPONDER [None]
  - VIRAL INFECTION [None]
